FAERS Safety Report 7775201-5 (Version None)
Quarter: 2011Q3

REPORT INFORMATION
  Report Type: 
  Country: None (occurrence: None)
  Receive Date: 20110923
  Receipt Date: 20110920
  Transmission Date: 20111222
  Serious: Yes (Death, Life-Threatening, Other)
  Sender: FDA-Public Use
  Company Number: JP-CELGENEUS-087-21880-11030477

PATIENT
  Sex: Female

DRUGS (22)
  1. REVLIMID [Suspect]
     Indication: MULTIPLE MYELOMA
     Dosage: 10 MILLIGRAM
     Route: 048
     Dates: start: 20100928, end: 20101020
  2. DECADRON [Concomitant]
     Indication: MULTIPLE MYELOMA
     Dosage: 33 MILLIGRAM
     Route: 041
     Dates: start: 20100928, end: 20101013
  3. DECADRON [Concomitant]
     Dosage: 33 MILLIGRAM
     Route: 041
     Dates: start: 20101104, end: 20101124
  4. ASPIRIN [Concomitant]
     Indication: ILL-DEFINED DISORDER
     Dosage: 100 MILLIGRAM
     Route: 048
     Dates: start: 20091223
  5. PREDNISOLONE [Concomitant]
     Dosage: 5 MILLIGRAM
     Route: 041
     Dates: start: 20110121, end: 20110123
  6. FAMOTIDINE [Concomitant]
     Indication: PROPHYLAXIS
     Dosage: 20 MILLIGRAM
     Route: 041
     Dates: start: 20110121, end: 20110121
  7. DEXAMETHASONE [Suspect]
     Indication: MULTIPLE MYELOMA
     Dosage: 40 MILLIGRAM
     Route: 048
     Dates: start: 20110112, end: 20110112
  8. PREDNISOLONE [Concomitant]
     Dosage: 5 MILLIGRAM
     Route: 048
     Dates: start: 20110105, end: 20110118
  9. DEPAS [Concomitant]
     Dosage: .5 MILLIGRAM
     Route: 048
     Dates: start: 20110105, end: 20110118
  10. ZOMETA [Concomitant]
     Indication: ILL-DEFINED DISORDER
     Dosage: 3.3 MILLIGRAM
     Route: 041
     Dates: start: 20101006, end: 20101006
  11. PREDNISOLONE [Concomitant]
     Indication: ILL-DEFINED DISORDER
     Dosage: 5 MILLIGRAM
     Route: 048
     Dates: start: 20100927, end: 20101004
  12. DEPAS [Concomitant]
     Indication: ILL-DEFINED DISORDER
     Dosage: .5 MILLIGRAM
     Route: 048
     Dates: start: 20101222
  13. REVLIMID [Suspect]
     Dosage: 15 MILLIGRAM
     Route: 048
     Dates: start: 20110105, end: 20110118
  14. DECADRON [Concomitant]
     Dosage: 33 MILLIGRAM
     Route: 041
     Dates: start: 20110119, end: 20110119
  15. ZOMETA [Concomitant]
     Dosage: 3.3 MILLIGRAM
     Route: 041
     Dates: start: 20101201, end: 20101201
  16. REVLIMID [Suspect]
     Dosage: 15 MILLIGRAM
     Route: 048
     Dates: start: 20101104, end: 20101123
  17. DECADRON [Concomitant]
     Dosage: 33 MILLIGRAM
     Route: 041
     Dates: start: 20110105, end: 20110105
  18. REVLIMID [Suspect]
     Dosage: 15 MILLIGRAM
     Route: 048
     Dates: start: 20101201, end: 20101221
  19. DECADRON [Concomitant]
     Dosage: 33 MILLIGRAM
     Route: 041
     Dates: start: 20101201, end: 20101222
  20. ZOMETA [Concomitant]
     Dosage: 3.3 MILLIGRAM
     Route: 041
     Dates: start: 20101104, end: 20101104
  21. RISPERDAL [Concomitant]
     Indication: PROPHYLAXIS
     Route: 048
     Dates: start: 20110121
  22. OMEPRAZOLE [Concomitant]
     Indication: PROPHYLAXIS
     Dosage: 20 MILLIGRAM
     Route: 041
     Dates: start: 20110122, end: 20110123

REACTIONS (19)
  - PAIN [None]
  - CONSTIPATION [None]
  - DECREASED APPETITE [None]
  - HYPOXIA [None]
  - LIP DRY [None]
  - MULTI-ORGAN FAILURE [None]
  - ANAEMIA [None]
  - PLATELET COUNT DECREASED [None]
  - UPPER RESPIRATORY TRACT INFECTION [None]
  - RESTLESSNESS [None]
  - PYREXIA [None]
  - MULTIPLE MYELOMA [None]
  - DEPRESSED LEVEL OF CONSCIOUSNESS [None]
  - PNEUMONIA [None]
  - WHITE BLOOD CELL COUNT DECREASED [None]
  - NEUTROPHIL COUNT DECREASED [None]
  - HEPATIC FUNCTION ABNORMAL [None]
  - BRONCHITIS [None]
  - LYMPHOCYTE COUNT DECREASED [None]
